FAERS Safety Report 22377895 (Version 2)
Quarter: 2023Q2

REPORT INFORMATION
  Report Type: Spontaneous
  Country: JP (occurrence: JP)
  Receive Date: 20230529
  Receipt Date: 20230622
  Transmission Date: 20230721
  Serious: Yes (Hospitalization)
  Sender: FDA-Public Use
  Company Number: JP-JNJFOC-20230567125

PATIENT
  Sex: Male

DRUGS (2)
  1. ERLEADA [Suspect]
     Active Substance: APALUTAMIDE
     Indication: Prostate cancer
     Dosage: DOSE UNKNOWN
     Route: 048
  2. ERLEADA [Suspect]
     Active Substance: APALUTAMIDE
     Dosage: DOSE UNKNOWN
     Route: 048
     Dates: start: 202306

REACTIONS (2)
  - Leukaemia [Recovered/Resolved]
  - Infectious pleural effusion [Recovered/Resolved]
